FAERS Safety Report 7853318-4 (Version None)
Quarter: 2011Q4

REPORT INFORMATION
  Report Type: 
  Country: None (occurrence: None)
  Receive Date: 20111026
  Receipt Date: 20111019
  Transmission Date: 20120403
  Serious: Yes (Hospitalization)
  Sender: FDA-Public Use
  Company Number: AU-JNJFOC-20111009758

PATIENT
  Age: 51 Year
  Sex: Male

DRUGS (1)
  1. RISPERDAL CONSTA [Suspect]
     Indication: PRODUCT USED FOR UNKNOWN INDICATION
     Dosage: RISPERDAL CONSTA GIVEN FORTNIGHTLY FOR APPROXIMATELY 3 YEARS
     Route: 030

REACTIONS (1)
  - DEEP VEIN THROMBOSIS [None]
